FAERS Safety Report 4517179-3 (Version None)
Quarter: 2004Q4

REPORT INFORMATION
  Report Type: 
  Country: None (occurrence: None)
  Receive Date: 20041202
  Receipt Date: 20041026
  Transmission Date: 20050328
  Serious: Yes (Hospitalization, Other)
  Sender: FDA-Public Use
  Company Number: DE-MERCK-0410DEU00697

PATIENT
  Age: 62 Year
  Sex: Female

DRUGS (3)
  1. VIOXX [Suspect]
     Indication: PAIN
     Route: 048
     Dates: start: 20040304, end: 20040601
  2. FLUOXETINE [Concomitant]
     Route: 048
  3. DOXEPIN HYDROCHLORIDE [Concomitant]
     Route: 048

REACTIONS (11)
  - BACK PAIN [None]
  - BALANCE DISORDER [None]
  - BONE SWELLING [None]
  - CEREBRAL DISORDER [None]
  - DIZZINESS [None]
  - FALL [None]
  - HEADACHE [None]
  - NAUSEA [None]
  - PALPITATIONS [None]
  - VOMITING [None]
  - WHIPLASH INJURY [None]
